FAERS Safety Report 11687022 (Version 10)
Quarter: 2016Q2

REPORT INFORMATION
  Report Type: Spontaneous
  Country: CA (occurrence: CA)
  Receive Date: 20151030
  Receipt Date: 20160608
  Transmission Date: 20160815
  Serious: Yes (Other)
  Sender: FDA-Public Use
  Company Number: CA-ROCHE-1652017

PATIENT
  Age: 42 Year
  Sex: Male
  Weight: 79 kg

DRUGS (13)
  1. CORTISONE [Suspect]
     Active Substance: CORTISONE\HYDROCORTISONE
     Indication: PRODUCT USED FOR UNKNOWN INDICATION
     Route: 065
  2. ADVAIR HFA [Concomitant]
     Active Substance: FLUTICASONE PROPIONATE\SALMETEROL XINAFOATE
  3. SINGULAIR [Concomitant]
     Active Substance: MONTELUKAST SODIUM
  4. PREDNISONE. [Concomitant]
     Active Substance: PREDNISONE
  5. NASONEX [Concomitant]
     Active Substance: MOMETASONE FUROATE
  6. XOLAIR [Suspect]
     Active Substance: OMALIZUMAB
     Indication: ASTHMA
     Route: 058
     Dates: start: 20151019
  7. XOLAIR [Suspect]
     Active Substance: OMALIZUMAB
     Route: 058
     Dates: start: 20160307
  8. XOLAIR [Suspect]
     Active Substance: OMALIZUMAB
     Route: 058
     Dates: start: 20160323
  9. XOLAIR [Suspect]
     Active Substance: OMALIZUMAB
     Route: 058
     Dates: start: 20160418
  10. PULMICORT TURBUHALER [Concomitant]
     Active Substance: BUDESONIDE
  11. VENTOLIN [Concomitant]
     Active Substance: ALBUTEROL SULFATE
  12. SODIUM BICARBONATE/SODIUM CHLORIDE [Concomitant]
  13. SEEBRI [Suspect]
     Active Substance: GLYCOPYRRONIUM
     Indication: ASTHMA
     Route: 065

REACTIONS (15)
  - Bronchitis bacterial [Unknown]
  - Hyperhidrosis [Unknown]
  - Orthostatic hypotension [Unknown]
  - Erythema [Unknown]
  - Asthma [Unknown]
  - Loss of consciousness [Unknown]
  - Anaphylactic shock [Unknown]
  - Vision blurred [Unknown]
  - Headache [Recovered/Resolved]
  - Dizziness [Unknown]
  - Malaise [Unknown]
  - Nasopharyngitis [Unknown]
  - Weight decreased [Recovering/Resolving]
  - Rash [Unknown]
  - Nasal discharge discolouration [Unknown]

NARRATIVE: CASE EVENT DATE: 20151019
